FAERS Safety Report 8617633-9 (Version None)
Quarter: 2012Q3

REPORT INFORMATION
  Report Type: 
  Country: None (occurrence: None)
  Receive Date: 20120824
  Receipt Date: 20111212
  Transmission Date: 20120928
  Serious: No
  Sender: FDA-Public Use
  Company Number: US-ASTRAZENECA-2011SE75089

PATIENT
  Sex: Male

DRUGS (3)
  1. SYMBICORT [Suspect]
     Dosage: 160/ 4.5 MCG UNKNOWN
     Route: 055
  2. SYMBICORT [Suspect]
     Dosage: 160/ 4.5 MCG UNKNOWN
     Route: 055
  3. SYMBICORT [Suspect]
     Dosage: 80/ 4.5 MCG UNKNOWN
     Route: 055

REACTIONS (2)
  - CONDITION AGGRAVATED [None]
  - DYSPEPSIA [None]
